FAERS Safety Report 4295355-5 (Version None)
Quarter: 2004Q1

REPORT INFORMATION
  Report Type: 
  Country: None (occurrence: None)
  Receive Date: 20040216
  Receipt Date: 20030624
  Transmission Date: 20041129
  Serious: No
  Sender: FDA-Public Use
  Company Number: US-GLAXOSMITHKLINE-A0413929A

PATIENT
  Age: 45 Year
  Sex: Male

DRUGS (3)
  1. LAMICTAL [Suspect]
     Dosage: 150MG AT NIGHT
     Route: 048
     Dates: start: 20030101
  2. MULTIVITAMIN [Concomitant]
  3. SLEEP AID [Concomitant]

REACTIONS (1)
  - BLISTER [None]
